FAERS Safety Report 4569441-6 (Version None)
Quarter: 2005Q1

REPORT INFORMATION
  Report Type: 
  Country: None (occurrence: None)
  Receive Date: 20050201
  Receipt Date: 20050125
  Transmission Date: 20050727
  Serious: Yes (Hospitalization)
  Sender: FDA-Public Use
  Company Number: K200500150

PATIENT
  Age: 74 Year
  Sex: Male
  Weight: 81.6 kg

DRUGS (6)
  1. ALTACE [Suspect]
     Indication: HYPERTENSION
     Dosage: 5 MG, SINGLE, ORAL
     Route: 048
     Dates: start: 20050125, end: 20050125
  2. METOPROLOL TARTRATE [Concomitant]
  3. PLAVIX [Concomitant]
  4. PROTONIIX PHARMACIA   (PANTOPRAZOLE) [Concomitant]
  5. CLONIDINE [Concomitant]
  6. KLOR-CON [Concomitant]

REACTIONS (3)
  - CHEST PAIN [None]
  - DIZZINESS [None]
  - NAUSEA [None]
